FAERS Safety Report 8540598 (Version 2)
Quarter: 2012Q4

REPORT INFORMATION
  Report Type: 
  Country: US (occurrence: US)
  Receive Date: 20120502
  Receipt Date: 20121013
  Transmission Date: 20130627
  Serious: No
  Sender: FDA-Public Use
  Company Number: US-US-EMD SERONO, INC.-7128549

PATIENT
  Age: 46 None
  Sex: Female

DRUGS (2)
  1. REBIF [Suspect]
     Indication: MULTIPLE SCLEROSIS
     Dates: start: 2008
  2. REBIF [Suspect]
     Route: 058
     Dates: start: 20120416

REACTIONS (2)
  - Anaemia [Unknown]
  - Myalgia [Unknown]
